FAERS Safety Report 10386981 (Version 3)
Quarter: 2014Q3

REPORT INFORMATION
  Report Type: Spontaneous
  Country: US (occurrence: US)
  Receive Date: 20140815
  Receipt Date: 20140828
  Transmission Date: 20150326
  Serious: Yes (Death, Hospitalization, Other)
  Sender: FDA-Public Use
  Company Number: US-009507513-2009SP028574

PATIENT
  Sex: Female
  Weight: 117.94 kg

DRUGS (2)
  1. NUVARING [Suspect]
     Active Substance: ETHINYL ESTRADIOL\ETONOGESTREL
     Indication: MENSTRUAL CYCLE MANAGEMENT
  2. NUVARING [Suspect]
     Active Substance: ETHINYL ESTRADIOL\ETONOGESTREL
     Indication: MENORRHAGIA
     Route: 067
     Dates: start: 20070411, end: 20081014

REACTIONS (17)
  - Eye movement disorder [Recovered/Resolved]
  - Cardiac arrest [Fatal]
  - Acute hepatic failure [Not Recovered/Not Resolved]
  - Disseminated intravascular coagulation [Recovered/Resolved]
  - Respiratory failure [Unknown]
  - Cardiac failure congestive [Unknown]
  - Faecal incontinence [Recovered/Resolved]
  - Vertigo [Recovering/Resolving]
  - Cervical polyp [Unknown]
  - Pulmonary embolism [Fatal]
  - Hypotension [Recovered/Resolved]
  - Myocardial strain [Unknown]
  - Oliguria [Unknown]
  - Off label use [Unknown]
  - Deep vein thrombosis [Recovered/Resolved]
  - Arrhythmia [Recovered/Resolved]
  - Decreased appetite [Unknown]

NARRATIVE: CASE EVENT DATE: 20080403
